FAERS Safety Report 14500298 (Version 1)
Quarter: 2018Q1

REPORT INFORMATION
  Report Type: Report from Study
  Country: US (occurrence: US)
  Receive Date: 20180207
  Receipt Date: 20180207
  Transmission Date: 20180509
  Serious: Yes (Death, Other)
  Sender: FDA-Public Use
  Company Number: US-BRISTOL-MYERS SQUIBB COMPANY-BMS-2016-062300

PATIENT
  Sex: Male

DRUGS (1)
  1. NIVOLUMAB [Suspect]
     Active Substance: NIVOLUMAB
     Indication: BRAIN NEOPLASM
     Dosage: UNK
     Route: 065
     Dates: start: 201511

REACTIONS (11)
  - Headache [Unknown]
  - Toxicity to various agents [Unknown]
  - Emotional disorder [Unknown]
  - Memory impairment [Unknown]
  - Neoplasm [Unknown]
  - Personality change [Unknown]
  - Decreased appetite [Unknown]
  - Irritability [Unknown]
  - Weight decreased [Unknown]
  - Death [Fatal]
  - Product use in unapproved indication [Unknown]
